FAERS Safety Report 7477605-7 (Version None)
Quarter: 2011Q2

REPORT INFORMATION
  Report Type: 
  Country: None (occurrence: None)
  Receive Date: 20110505
  Receipt Date: 20110411
  Transmission Date: 20111010
  Serious: Yes (Hospitalization)
  Sender: FDA-Public Use
  Company Number: CIP09002843

PATIENT
  Sex: Female

DRUGS (15)
  1. PREVACID [Concomitant]
  2. FOSAMAX [Suspect]
     Dosage: 70 MG ONCE WEEKLY, ORAL; 70 MG ONCE WEEKLY,ORAL; 70MG ONCE WEEKLY, ORAL
     Route: 048
     Dates: start: 20050718, end: 20060428
  3. FOSAMAX [Suspect]
     Dosage: 70 MG ONCE WEEKLY, ORAL; 70 MG ONCE WEEKLY,ORAL; 70MG ONCE WEEKLY, ORAL
     Route: 048
     Dates: start: 20020208, end: 20020702
  4. FOSAMAX [Suspect]
     Dosage: 70 MG ONCE WEEKLY, ORAL; 70 MG ONCE WEEKLY,ORAL; 70MG ONCE WEEKLY, ORAL
     Route: 048
     Dates: start: 20061026
  5. PEPCID AC [Concomitant]
  6. NAPROXEN [Concomitant]
  7. CELEBREX [Concomitant]
  8. ZOLOFT [Concomitant]
  9. PIROXICAM [Concomitant]
  10. PREDNISONE [Concomitant]
  11. VAGIFEM [Concomitant]
  12. UNITHROID (LEVOTHYROXINE SODIUM) [Concomitant]
  13. CALCIUM (CALCIUM) [Concomitant]
  14. ASACOL [Concomitant]
  15. ACTONEL [Suspect]
     Indication: OSTEOPOROSIS
     Dosage: 35 MG ONCE WEEKLY,ORAL
     Route: 048
     Dates: start: 20021009, end: 20050717

REACTIONS (20)
  - MOUTH ULCERATION [None]
  - TOOTH FRACTURE [None]
  - TOOTH ABSCESS [None]
  - SWELLING [None]
  - BONE LESION [None]
  - DENTAL CARIES [None]
  - ABSCESS DRAINAGE [None]
  - ORAL PAIN [None]
  - TOOTH DISORDER [None]
  - PERIODONTITIS [None]
  - OSTEOMYELITIS [None]
  - PAIN IN JAW [None]
  - BONE FRAGMENTATION [None]
  - BONE ATROPHY [None]
  - OSTEONECROSIS [None]
  - ORAL TORUS [None]
  - PERIODONTAL DISEASE [None]
  - ODONTOGENIC CYST [None]
  - BONE LOSS [None]
  - SENSITIVITY OF TEETH [None]
